FAERS Safety Report 24362236 (Version 7)
Quarter: 2025Q2

REPORT INFORMATION
  Report Type: Report from Study
  Country: US (occurrence: US)
  Receive Date: 20240925
  Receipt Date: 20250613
  Transmission Date: 20250716
  Serious: Yes (Hospitalization)
  Sender: BIOVITRUM
  Company Number: US-BIOVITRUM-2024-US-007212

PATIENT
  Age: 61 Year
  Sex: Female

DRUGS (1)
  1. KINERET [Suspect]
     Active Substance: ANAKINRA
     Indication: Product used for unknown indication
     Route: 058

REACTIONS (8)
  - Product dose omission issue [Unknown]
  - Ill-defined disorder [Unknown]
  - Varicose vein [Unknown]
  - Cellulitis [Unknown]
  - Skin disorder [Unknown]
  - Malaise [Unknown]
  - Arthralgia [Unknown]
  - Pleural effusion [Unknown]
